FAERS Safety Report 7585602-6 (Version None)
Quarter: 2011Q2

REPORT INFORMATION
  Report Type: 
  Country: None (occurrence: None)
  Receive Date: 20110624
  Receipt Date: 20110609
  Transmission Date: 20111010
  Serious: Yes (Hospitalization)
  Sender: FDA-Public Use
  Company Number: DSJ-2011-11323

PATIENT
  Age: 77 Year
  Sex: Female

DRUGS (8)
  1. LIIPOVAS (SIMVASTATIN) [Concomitant]
  2. SELBEX (TEPRENONE) [Concomitant]
  3. DECADRON [Concomitant]
  4. RABEPRAZOLE SODIUM [Concomitant]
  5. OLMESARTAN MEDOXOMIL [Suspect]
     Indication: HYPERTENSION
     Dosage: 20 MG, PER ORAL
     Route: 048
  6. ONON (PRANLUKAST) [Concomitant]
  7. THEO-DUR [Concomitant]
  8. SYMBICORT [Concomitant]

REACTIONS (1)
  - HYPOGLYCAEMIC COMA [None]
